FAERS Safety Report 5146615-7 (Version None)
Quarter: 2006Q4

REPORT INFORMATION
  Report Type: 
  Country: None (occurrence: None)
  Receive Date: 20061102
  Receipt Date: 20061020
  Transmission Date: 20070319
  Serious: Yes (Hospitalization)
  Sender: FDA-Public Use
  Company Number: 2006097909

PATIENT
  Age: 57 Year
  Sex: Male

DRUGS (6)
  1. SUTENT [Suspect]
     Dosage: 50 MG (1 IN 1 D), ORAL; SEE IMAGE
     Route: 048
     Dates: start: 20060713, end: 20060727
  2. SUTENT [Suspect]
     Dosage: 50 MG (1 IN 1 D), ORAL; SEE IMAGE
     Route: 048
     Dates: start: 20060804, end: 20060811
  3. TRILEPTAL [Concomitant]
  4. MORPHINE SULFATE [Concomitant]
  5. DURAGESIC-100 [Concomitant]
  6. PRAZEPAM [Concomitant]

REACTIONS (4)
  - ABDOMINAL MASS [None]
  - COLONIC FISTULA [None]
  - MALIGNANT NEOPLASM PROGRESSION [None]
  - RENAL CELL CARCINOMA STAGE UNSPECIFIED [None]
